FAERS Safety Report 6870868-8 (Version None)
Quarter: 2010Q3

REPORT INFORMATION
  Report Type: 
  Country: None (occurrence: None)
  Receive Date: 20100723
  Receipt Date: 20100712
  Transmission Date: 20110219
  Serious: Yes (Hospitalization)
  Sender: FDA-Public Use
  Company Number: PHHY2010TW17458

PATIENT
  Sex: Male

DRUGS (1)
  1. EXJADE [Suspect]
     Dosage: 5 TABLETS (750 MG)
     Route: 048

REACTIONS (7)
  - BLISTER [None]
  - CELLULITIS [None]
  - DEBRIDEMENT [None]
  - HYPOTENSION [None]
  - PROCTALGIA [None]
  - PYREXIA [None]
  - SURGERY [None]
